FAERS Safety Report 8809653 (Version 1)
Quarter: 2012Q4

REPORT INFORMATION
  Report Type: 
  Country: US (occurrence: US)
  Receive Date: 20120926
  Receipt Date: 20120926
  Transmission Date: 20130627
  Serious: No
  Sender: FDA-Public Use
  Company Number: US-MYLANLABS-2011S1018265

PATIENT
  Age: 74 Year
  Sex: Female

DRUGS (2)
  1. FLUOXETINE HYDROCHLORIDE TABLETS [Suspect]
     Indication: ANXIETY
     Route: 048
     Dates: start: 20110821
  2. SYNTHROID [Concomitant]
     Indication: HYPOTHYROIDISM
     Route: 048

REACTIONS (1)
  - Diarrhoea [Recovered/Resolved]
